FAERS Safety Report 9708764 (Version 1)
Quarter: 2013Q4

REPORT INFORMATION
  Report Type: Spontaneous
  Country: RU (occurrence: RU)
  Receive Date: 20131125
  Receipt Date: 20131125
  Transmission Date: 20140711
  Serious: Yes (Other)
  Sender: FDA-Public Use
  Company Number: RU-GLAXOSMITHKLINE-B0947411A

PATIENT
  Sex: Female

DRUGS (1)
  1. AVAMYS [Suspect]
     Indication: RHINITIS ALLERGIC
     Dosage: 2SPR PER DAY
     Route: 055
     Dates: start: 2013, end: 2013

REACTIONS (4)
  - Flank pain [Unknown]
  - Blood pressure decreased [Unknown]
  - Ovarian enlargement [Not Recovered/Not Resolved]
  - Ovarian cyst [Not Recovered/Not Resolved]
